FAERS Safety Report 4711994-9 (Version None)
Quarter: 2005Q3

REPORT INFORMATION
  Report Type: 
  Country: None (occurrence: None)
  Receive Date: 20050706
  Receipt Date: 20041102
  Transmission Date: 20060218
  Serious: Yes (Death)
  Sender: FDA-Public Use
  Company Number: KDL064018

PATIENT
  Age: 72 Year
  Sex: Male
  Weight: 92.6 kg

DRUGS (9)
  1. ARANESP [Suspect]
     Indication: RENAL FAILURE CHRONIC
     Dosage: 300 MCG, 1 IN 2 WEEKS
     Dates: start: 20030609, end: 20030909
  2. PROCRIT [Suspect]
     Indication: RENAL FAILURE CHRONIC
     Dosage: 60000 U, 1 IN 1 WEEKS, SC
     Route: 058
     Dates: start: 20030909, end: 20031217
  3. BLOOD CELLS, PACKED HUMAN [Concomitant]
  4. PREDNISONE [Concomitant]
  5. CYCLOSPORINE [Concomitant]
  6. WARFARIN SODIUM [Concomitant]
  7. FUROSEMIDE [Concomitant]
  8. METOPROLOL [Concomitant]
  9. LEVOTYROXINE SODIUM [Concomitant]

REACTIONS (4)
  - BONE MARROW DEPRESSION [None]
  - CARDIAC FAILURE CONGESTIVE [None]
  - CONDITION AGGRAVATED [None]
  - DRUG INEFFECTIVE [None]
